FAERS Safety Report 24745115 (Version 1)
Quarter: 2024Q4

REPORT INFORMATION
  Report Type: Spontaneous
  Country: SE (occurrence: SE)
  Receive Date: 20241217
  Receipt Date: 20241217
  Transmission Date: 20250115
  Serious: Yes (Other)
  Sender: MERCK KGAA
  Company Number: None

PATIENT
  Age: 53 Year
  Sex: Male
  Weight: 90 kg

DRUGS (6)
  1. EUTHYROX [Suspect]
     Active Substance: LEVOTHYROXINE SODIUM
     Indication: Hypothyroidism
     Dosage: 1 TABLET 1 TIME DAILY DOSE: FIRST DOSE
     Route: 048
     Dates: start: 20230701, end: 20240906
  2. ACETAMINOPHEN [Concomitant]
     Active Substance: ACETAMINOPHEN
     Indication: Product used for unknown indication
     Dosage: 1-2 TABLETS AS NEEDED. A MAXIMUM OF THREE TIMES PER DAY.
     Route: 048
     Dates: start: 19970401
  3. TESTOSTERONE [Concomitant]
     Active Substance: TESTOSTERONE
     Indication: Product used for unknown indication
     Dosage: 16.2 MG/G,  2 PUMP PRESSURE EQUAL TO 40.5 MG.
     Route: 003
     Dates: start: 20180101
  4. CLONAZEPAM [Concomitant]
     Active Substance: CLONAZEPAM
     Indication: Product used for unknown indication
     Dosage: 0.25 (2 DF) AT ONCE DAILY.
     Route: 048
     Dates: start: 20200330
  5. OMEPRAZOLE [Concomitant]
     Active Substance: OMEPRAZOLE
     Indication: Dyspepsia
     Dosage: AGAINST HEARTBURN AND ACID REFLUX WHEN NEEDED.
     Route: 048
     Dates: start: 20150101
  6. OMEPRAZOLE [Concomitant]
     Active Substance: OMEPRAZOLE
     Indication: Gastrooesophageal reflux disease

REACTIONS (4)
  - Suicidal ideation [Recovered/Resolved]
  - Fatigue [Recovered/Resolved]
  - Loss of personal independence in daily activities [Recovering/Resolving]
  - Hypertension [Not Recovered/Not Resolved]

NARRATIVE: CASE EVENT DATE: 20230801
